FAERS Safety Report 4866656-4 (Version None)
Quarter: 2005Q4

REPORT INFORMATION
  Report Type: 
  Country: None (occurrence: None)
  Receive Date: 20051227
  Receipt Date: 20051217
  Transmission Date: 20060501
  Serious: Yes (Other)
  Sender: FDA-Public Use
  Company Number: US-JNJFOC-20051205174

PATIENT
  Age: 4 Year
  Sex: Male

DRUGS (3)
  1. CHILDREN'S MOTRIN DYE-FREE ORAL [Suspect]
     Route: 048
  2. CHILDREN'S MOTRIN DYE-FREE ORAL [Suspect]
     Route: 048
  3. AMOXICILLIN [Suspect]
     Indication: INFECTION
     Route: 048

REACTIONS (4)
  - HYPERSENSITIVITY [None]
  - PENILE SWELLING [None]
  - RASH GENERALISED [None]
  - SWELLING FACE [None]
